FAERS Safety Report 8121166 (Version 3)
Quarter: 2014Q1

REPORT INFORMATION
  Report Type: Report from Study
  Country: CA (occurrence: CA)
  Receive Date: 20110906
  Receipt Date: 20140326
  Transmission Date: 20141002
  Serious: Yes (Hospitalization, Other)
  Sender: FDA-Public Use
  Company Number: PHHY2011CA74356

PATIENT
  Age: 35 Year
  Sex: Male

DRUGS (8)
  1. CLOZARIL [Suspect]
     Indication: SCHIZOPHRENIA
     Dates: start: 20020813, end: 200608
  2. CLOZARIL [Suspect]
     Dosage: 162.5 MG, QHS
     Route: 048
     Dates: start: 20081126
  3. CLOZARIL [Suspect]
     Dates: start: 20081202, end: 20110816
  4. OLANZAPINE [Concomitant]
     Indication: SCHIZOPHRENIA
     Dosage: 15 MG, QHS
     Route: 048
     Dates: start: 200808
  5. CLOMIPRAMINE [Concomitant]
     Indication: OBSESSIVE-COMPULSIVE DISORDER
     Dosage: 300 MG, QHS
     Route: 048
     Dates: start: 20070211
  6. CLOMIPRAMINE [Concomitant]
     Dosage: 275 MG, QHS
  7. ANTIDEPRESSANTS [Concomitant]
  8. LURASIDONE [Concomitant]
     Dosage: 80 MG, QD
     Route: 048

REACTIONS (22)
  - Dilatation ventricular [Recovering/Resolving]
  - Left atrial dilatation [Recovering/Resolving]
  - Respiratory tract congestion [Recovering/Resolving]
  - Oropharyngeal pain [Recovering/Resolving]
  - Metabolic syndrome [Recovered/Resolved with Sequelae]
  - Congestive cardiomyopathy [Recovered/Resolved with Sequelae]
  - Malaise [Recovering/Resolving]
  - Chest pain [Recovering/Resolving]
  - Dyspnoea [Recovering/Resolving]
  - Left ventricular dysfunction [Recovering/Resolving]
  - Ejection fraction decreased [Recovering/Resolving]
  - Heart sounds abnormal [Recovering/Resolving]
  - Brain natriuretic peptide increased [Recovering/Resolving]
  - Sinus tachycardia [Unknown]
  - Central venous pressure increased [Unknown]
  - Conduction disorder [Unknown]
  - Mitral valve incompetence [Unknown]
  - Pericardial effusion [Unknown]
  - Exercise tolerance decreased [Unknown]
  - Pulmonary valve incompetence [Unknown]
  - QRS axis abnormal [Unknown]
  - Electrocardiogram ST-T change [Unknown]
